FAERS Safety Report 9508583 (Version 2)
Quarter: 2013Q4

REPORT INFORMATION
  Report Type: Report from Study
  Country: US (occurrence: US)
  Receive Date: 20130909
  Receipt Date: 20131007
  Transmission Date: 20140711
  Serious: Yes (Hospitalization, Other)
  Sender: FDA-Public Use
  Company Number: US-ACTELION-A-NJ2013-87935

PATIENT
  Age: 70 Year
  Sex: Male

DRUGS (9)
  1. TRACLEER [Suspect]
     Indication: PULMONARY HYPERTENSION
     Dosage: 125 MG, UNK
     Route: 048
     Dates: start: 2005
  2. TRACLEER [Suspect]
     Dosage: 125 MG, UNK
     Route: 048
     Dates: start: 2005, end: 2005
  3. ADVAIR [Concomitant]
     Dosage: 250/50
     Route: 048
     Dates: start: 2008
  4. PREDNISONE [Concomitant]
     Dosage: 10 MG, QD
     Dates: start: 2013
  5. ASPIRIN [Concomitant]
     Dosage: 81 MG, QD
     Route: 048
     Dates: start: 2008
  6. DILTIZEM [Concomitant]
     Dosage: 180 MG, UNK
     Route: 048
     Dates: start: 2008
  7. STOOL SOFTENER [Concomitant]
     Dosage: 100 MG, UNK
     Route: 048
     Dates: start: 2008
  8. ATORVASTATIN [Concomitant]
     Dosage: 20 MG, QD
     Route: 048
     Dates: start: 2008
  9. OXYCONTIN [Concomitant]
     Dosage: 5 MG, PRN
     Route: 048
     Dates: start: 2013

REACTIONS (4)
  - Pneumothorax [Recovering/Resolving]
  - Local swelling [Recovering/Resolving]
  - Condition aggravated [Recovering/Resolving]
  - Dyspnoea [Recovering/Resolving]
